FAERS Safety Report 7135261-1 (Version None)
Quarter: 2010Q4

REPORT INFORMATION
  Report Type: 
  Country: None (occurrence: None)
  Receive Date: 20101203
  Receipt Date: 20101123
  Transmission Date: 20110411
  Serious: Yes (Disabling, Other)
  Sender: FDA-Public Use
  Company Number: A0851998A

PATIENT
  Age: 63 Year
  Sex: Male
  Weight: 165.9 kg

DRUGS (4)
  1. AVANDIA [Suspect]
     Dosage: 4MG PER DAY
     Route: 048
     Dates: start: 20040630, end: 20050701
  2. LANTUS [Concomitant]
  3. METOPROLOL [Concomitant]
  4. NORVASC [Concomitant]

REACTIONS (2)
  - ATRIOVENTRICULAR BLOCK FIRST DEGREE [None]
  - MYOCARDIAL INFARCTION [None]
